FAERS Safety Report 11004076 (Version 1)
Quarter: 2015Q2

REPORT INFORMATION
  Report Type: Spontaneous
  Country: US (occurrence: US)
  Receive Date: 20150409
  Receipt Date: 20150409
  Transmission Date: 20150821
  Serious: Yes (Death, Other)
  Sender: FDA-Public Use
  Company Number: US-ASTRAZENECA-2015SE31659

PATIENT
  Age: 776 Month
  Sex: Male

DRUGS (57)
  1. PHENTERMINE [Concomitant]
     Active Substance: PHENTERMINE
     Route: 048
     Dates: start: 20061005
  2. SONATA [Concomitant]
     Active Substance: ZALEPLON
     Route: 048
     Dates: start: 20050209
  3. STARLIX [Concomitant]
     Active Substance: NATEGLINIDE
     Route: 048
     Dates: start: 20101123
  4. ABILIFY [Concomitant]
     Active Substance: ARIPIPRAZOLE
     Route: 048
     Dates: start: 20091104
  5. LEVEMIR [Concomitant]
     Active Substance: INSULIN DETEMIR
     Route: 058
     Dates: start: 20100729
  6. TRADJENTA [Concomitant]
     Active Substance: LINAGLIPTIN
     Route: 048
     Dates: start: 20110912
  7. EFFEXOR [Concomitant]
     Active Substance: VENLAFAXINE HYDROCHLORIDE
     Route: 048
     Dates: start: 20050921
  8. RAPAFLO [Concomitant]
     Active Substance: SILODOSIN
     Dosage: 8 MG
     Route: 048
     Dates: start: 20130319
  9. ACIPHEX [Concomitant]
     Active Substance: RABEPRAZOLE SODIUM
     Dosage: 20 MG
     Dates: start: 20120608
  10. GLIPIZIDE. [Concomitant]
     Active Substance: GLIPIZIDE
     Route: 048
     Dates: start: 20100301
  11. LEVITRA [Concomitant]
     Active Substance: VARDENAFIL HYDROCHLORIDE TRIHYDRATE
     Route: 048
     Dates: start: 20100301
  12. LIPITOR [Concomitant]
     Active Substance: ATORVASTATIN CALCIUM
     Route: 048
     Dates: start: 20100301
  13. FENTANYL. [Concomitant]
     Active Substance: FENTANYL
  14. OXYCONTIN [Concomitant]
     Active Substance: OXYCODONE HYDROCHLORIDE
     Route: 048
  15. DICYCLOMINE [Concomitant]
     Active Substance: DICYCLOMINE HYDROCHLORIDE
     Dosage: 20 MG
     Route: 048
     Dates: start: 20130319
  16. BACLOFEN. [Concomitant]
     Active Substance: BACLOFEN
     Dosage: 10 MG
     Dates: start: 20130307
  17. BYETTA [Suspect]
     Active Substance: EXENATIDE
     Route: 058
     Dates: start: 20060110
  18. BYETTA [Suspect]
     Active Substance: EXENATIDE
     Route: 058
     Dates: start: 20080104
  19. SKELAXIN [Concomitant]
     Active Substance: METAXALONE
     Route: 048
     Dates: start: 20050809
  20. OLANZAPINE. [Concomitant]
     Active Substance: OLANZAPINE
     Dosage: 5 MG
     Route: 048
     Dates: start: 20130319
  21. PROCHLORPERAZINE MALEATE. [Concomitant]
     Active Substance: PROCHLORPERAZINE MALEATE
     Route: 048
     Dates: start: 20130319
  22. PRISTIQ EXTENDED RELEASE [Concomitant]
     Active Substance: DESVENLAFAXINE SUCCINATE
     Dosage: 50 MG
     Dates: start: 20120427
  23. CYMBALTA [Concomitant]
     Active Substance: DULOXETINE HYDROCHLORIDE
     Route: 048
     Dates: start: 20100301
  24. FLOMAX [Concomitant]
     Active Substance: TAMSULOSIN HYDROCHLORIDE
     Route: 048
     Dates: start: 20091013
  25. HYDROCHLOROTHIAZIDE. [Concomitant]
     Active Substance: HYDROCHLOROTHIAZIDE
     Route: 048
     Dates: start: 20050825
  26. CLONAZEPAM. [Concomitant]
     Active Substance: CLONAZEPAM
     Route: 048
     Dates: start: 20060616
  27. ZYRTEC [Concomitant]
     Active Substance: CETIRIZINE HYDROCHLORIDE
     Route: 048
     Dates: start: 20051209
  28. CELEXA [Concomitant]
     Active Substance: CITALOPRAM HYDROBROMIDE
     Route: 048
     Dates: start: 20070917
  29. LUNESTA [Concomitant]
     Active Substance: ESZOPICLONE
     Dosage: 2 MG
     Dates: start: 20130412
  30. ZOLPIDEM [Concomitant]
     Active Substance: ZOLPIDEM\ZOLPIDEM TARTRATE
     Dosage: 12.5 MG
     Dates: start: 20121012
  31. BYETTA [Suspect]
     Active Substance: EXENATIDE
     Route: 058
     Dates: start: 20070314
  32. ACTOS [Concomitant]
     Active Substance: PIOGLITAZONE HYDROCHLORIDE
     Route: 048
     Dates: start: 20050201
  33. ZOLOFT [Concomitant]
     Active Substance: SERTRALINE HYDROCHLORIDE
     Route: 048
     Dates: start: 20050528
  34. VALIUM [Concomitant]
     Active Substance: DIAZEPAM
     Route: 048
     Dates: start: 20110621
  35. VIIBRYD [Concomitant]
     Active Substance: VILAZODONE HYDROCHLORIDE
     Route: 048
     Dates: start: 20110824
  36. ALLOPURINOL. [Concomitant]
     Active Substance: ALLOPURINOL
     Route: 048
     Dates: start: 20050131
  37. MERIDIA [Concomitant]
     Active Substance: SIBUTRAMINE HYDROCHLORIDE
     Route: 048
     Dates: start: 20070614
  38. OXYCODONE [Concomitant]
     Active Substance: OXYCODONE
  39. ALPRAZOLAM. [Concomitant]
     Active Substance: ALPRAZOLAM
     Dosage: 1 MG
     Route: 048
     Dates: start: 20130319
  40. ONDANSETRON HCL [Concomitant]
     Active Substance: ONDANSETRON HYDROCHLORIDE
     Dosage: 8 MG
     Route: 048
     Dates: start: 20130319
  41. ROPINIROLE. [Concomitant]
     Active Substance: ROPINIROLE
     Dosage: 0.25 MG
     Route: 048
     Dates: start: 20120218
  42. PREDNISONE. [Concomitant]
     Active Substance: PREDNISONE
     Dates: start: 20130415
  43. TRICOR [Concomitant]
     Active Substance: FENOFIBRATE
     Dosage: 145 MG
     Dates: start: 20050419
  44. BYETTA [Suspect]
     Active Substance: EXENATIDE
     Route: 058
     Dates: start: 20090302
  45. BYETTA [Suspect]
     Active Substance: EXENATIDE
     Route: 058
     Dates: start: 20101014
  46. FISH OIL [Concomitant]
     Active Substance: FISH OIL
     Route: 048
     Dates: start: 20061005
  47. PERCOCET [Concomitant]
     Active Substance: ACETAMINOPHEN\OXYCODONE HYDROCHLORIDE
     Dosage: 10-60 MG. THREE TIMES A DAY
     Route: 048
     Dates: start: 20100301
  48. HYDROXYZINE HCL [Concomitant]
     Active Substance: HYDROXYZINE HYDROCHLORIDE
     Route: 048
     Dates: start: 20110708
  49. AMARYL [Concomitant]
     Active Substance: GLIMEPIRIDE
     Dates: start: 20050209
  50. URSODIOL. [Concomitant]
     Active Substance: URSODIOL
     Dosage: 300 MG
     Dates: start: 20130327
  51. CRESTOR [Concomitant]
     Active Substance: ROSUVASTATIN CALCIUM
     Dosage: 10 MG
     Dates: start: 20050131
  52. JANUVIA [Suspect]
     Active Substance: SITAGLIPTIN PHOSPHATE
     Route: 048
     Dates: start: 20110824
  53. CELEBREX [Concomitant]
     Active Substance: CELECOXIB
     Route: 048
     Dates: start: 20100301
  54. LEXAPRO [Concomitant]
     Active Substance: ESCITALOPRAM OXALATE
     Route: 048
     Dates: start: 20101124
  55. METFORMIN HCL [Concomitant]
     Active Substance: METFORMIN HYDROCHLORIDE
     Route: 048
     Dates: start: 20050210
  56. TEMAZEPAM. [Concomitant]
     Active Substance: TEMAZEPAM
     Dosage: 30 MG
     Dates: start: 20120818
  57. KETOROLAC [Concomitant]
     Active Substance: KETOROLAC\KETOROLAC TROMETHAMINE
     Dosage: 10 MG
     Dates: start: 20070525

REACTIONS (5)
  - Jaundice cholestatic [Unknown]
  - Metastases to pleura [Unknown]
  - Metastases to liver [Unknown]
  - Metastases to lung [Unknown]
  - Pancreatic carcinoma metastatic [Fatal]

NARRATIVE: CASE EVENT DATE: 201206
